FAERS Safety Report 22048587 (Version 2)
Quarter: 2023Q1

REPORT INFORMATION
  Report Type: Report from Study
  Country: FR (occurrence: None)
  Receive Date: 20230301
  Receipt Date: 20230330
  Transmission Date: 20230417
  Serious: Yes (Death, Hospitalization)
  Sender: FDA-Public Use
  Company Number: FR-ROCHE-3292958

PATIENT
  Age: 83 Year
  Sex: Male

DRUGS (9)
  1. ATEZOLIZUMAB [Suspect]
     Active Substance: ATEZOLIZUMAB
     Indication: Non-small cell lung cancer
     Dosage: ON 08/FEB/2023, LAST DOSE OF STUDY DRUG WAS ADMINISTERED.
     Route: 065
     Dates: start: 20211006
  2. PACLITAXEL [Suspect]
     Active Substance: PACLITAXEL
     Indication: Non-small cell lung cancer
     Dosage: D1, 8, 15, EVERY 4 WEEKS?ON 08/FEB/2023, LAST DOSE OF STUDY DRUG WAS ADMINISTERED.
     Route: 065
     Dates: start: 20211006
  3. CARBOPLATIN [Suspect]
     Active Substance: CARBOPLATIN
     Indication: Non-small cell lung cancer
     Dosage: AUC 6?ON 08/FEB/2023, LAST DOSE OF STUDY DRUG WAS ADMINISTERED.
     Route: 065
     Dates: start: 20211006
  4. KARDEGIC [Concomitant]
     Active Substance: ASPIRIN DL-LYSINE
  5. BACTRIM [Concomitant]
     Active Substance: SULFAMETHOXAZOLE\TRIMETHOPRIM
  6. SYMBICORT [Concomitant]
     Active Substance: BUDESONIDE\FORMOTEROL FUMARATE DIHYDRATE
  7. PERINDOPRIL [Concomitant]
     Active Substance: PERINDOPRIL
  8. BETAMETHASONE [Concomitant]
     Active Substance: BETAMETHASONE
  9. SPIRIVA [Concomitant]
     Active Substance: TIOTROPIUM BROMIDE MONOHYDRATE

REACTIONS (2)
  - Respiratory distress [Not Recovered/Not Resolved]
  - Pneumonia [Fatal]

NARRATIVE: CASE EVENT DATE: 20230221
